FAERS Safety Report 7206374-0 (Version None)
Quarter: 2011Q1

REPORT INFORMATION
  Report Type: 
  Country: None (occurrence: None)
  Receive Date: 20110103
  Receipt Date: 20110103
  Transmission Date: 20110831
  Serious: Yes (Death, Hospitalization, Other)
  Sender: FDA-Public Use
  Company Number: PHHO2007DE17800

PATIENT
  Sex: Male
  Weight: 73.6 kg

DRUGS (11)
  1. TORSEMIDE [Concomitant]
  2. DELIX [Concomitant]
  3. LOCOL [Concomitant]
  4. BELOC [Concomitant]
  5. RAMIPRIL [Concomitant]
  6. MICARDIS [Concomitant]
  7. TELMISARTAN [Concomitant]
  8. CERTICAN [Suspect]
     Indication: CONGENITAL CYSTIC KIDNEY DISEASE
     Dosage: UNK
     Route: 048
     Dates: start: 20070725, end: 20071008
  9. TOREM [Concomitant]
  10. ALLOPURINOL [Concomitant]
  11. METOPROLOL [Concomitant]

REACTIONS (37)
  - COAGULOPATHY [None]
  - TYPE 2 DIABETES MELLITUS [None]
  - ASTHENIA [None]
  - DIZZINESS EXERTIONAL [None]
  - VERTIGO [None]
  - ANGIOPATHY [None]
  - ELECTROCARDIOGRAM T WAVE INVERSION [None]
  - HEPATIC FAILURE [None]
  - ASCITES [None]
  - ACQUIRED DIAPHRAGMATIC EVENTRATION [None]
  - CEREBROVASCULAR ACCIDENT [None]
  - POLYCYSTIC LIVER DISEASE [None]
  - METASTASES TO PERITONEUM [None]
  - BUNDLE BRANCH BLOCK RIGHT [None]
  - DIVERTICULITIS [None]
  - LEFT VENTRICULAR HYPERTROPHY [None]
  - JAUNDICE [None]
  - SINUS ARRHYTHMIA [None]
  - VENOUS THROMBOSIS LIMB [None]
  - ANAEMIA [None]
  - PANCREATIC DUCT DILATATION [None]
  - CHOLESTASIS [None]
  - HEMIPARESIS [None]
  - APHASIA [None]
  - METASTASES TO LIVER [None]
  - SPLENIC CYST [None]
  - HYPERTENSION [None]
  - RENAL FAILURE [None]
  - CARBOHYDRATE ANTIGEN 19-9 INCREASED [None]
  - ENCEPHALOPATHY [None]
  - MALAISE [None]
  - SPEECH DISORDER [None]
  - SUPERINFECTION [None]
  - ADENOCARCINOMA PANCREAS [None]
  - WEIGHT DECREASED [None]
  - ENDOSCOPIC RETROGRADE CHOLANGIOPANCREATOGRAPHY [None]
  - DUODENAL STENOSIS [None]
